FAERS Safety Report 4560656-X (Version None)
Quarter: 2005Q1

REPORT INFORMATION
  Report Type: 
  Country: None (occurrence: None)
  Receive Date: 20050121
  Receipt Date: 20050110
  Transmission Date: 20050727
  Serious: Yes (Death)
  Sender: FDA-Public Use
  Company Number: 05H-087-0285770-00

PATIENT
  Age: 76 Year
  Sex: Male

DRUGS (1)
  1. LIDOCAINE HCL INJ [Suspect]
     Indication: VENTRICULAR ARRHYTHMIA
     Dosage: 5 ML OF 10%, INTRAVENOUS
     Route: 042

REACTIONS (5)
  - CARDIO-RESPIRATORY ARREST [None]
  - GRAND MAL CONVULSION [None]
  - MEDICATION ERROR [None]
  - OVERDOSE [None]
  - THERAPEUTIC AGENT TOXICITY [None]
